FAERS Safety Report 20872336 (Version 2)
Quarter: 2022Q3

REPORT INFORMATION
  Report Type: Spontaneous
  Country: US (occurrence: US)
  Receive Date: 20220525
  Receipt Date: 20220712
  Transmission Date: 20221027
  Serious: No
  Sender: FDA-Public Use
  Company Number: US-PFIZER INC-202200637431

PATIENT

DRUGS (1)
  1. WATER [Suspect]
     Active Substance: WATER
     Dosage: UNK
     Route: 058
     Dates: start: 202204, end: 202204

REACTIONS (4)
  - Injection site pain [Recovered/Resolved]
  - Injection site irritation [Not Recovered/Not Resolved]
  - Injection site erythema [Not Recovered/Not Resolved]
  - Injection site swelling [Not Recovered/Not Resolved]

NARRATIVE: CASE EVENT DATE: 20220401
